FAERS Safety Report 18718788 (Version 1)
Quarter: 2021Q1

REPORT INFORMATION
  Report Type: Spontaneous
  Country: US (occurrence: US)
  Receive Date: 20210108
  Receipt Date: 20210108
  Transmission Date: 20210419
  Serious: Yes (Other)
  Sender: FDA-Public Use
  Company Number: NVSC2021US002389

PATIENT
  Age: 62 Year
  Sex: Female

DRUGS (1)
  1. METFORMIN [Suspect]
     Active Substance: METFORMIN HYDROCHLORIDE
     Indication: PRODUCT USED FOR UNKNOWN INDICATION
     Dosage: 270 G
     Route: 065

REACTIONS (5)
  - Lactic acidosis [Unknown]
  - Metabolic acidosis [Unknown]
  - Suicide attempt [Unknown]
  - Hyperglycaemia [Unknown]
  - Intentional overdose [Unknown]
